FAERS Safety Report 21698550 (Version 1)
Quarter: 2022Q4

REPORT INFORMATION
  Report Type: Spontaneous
  Country: US (occurrence: None)
  Receive Date: 20221208
  Receipt Date: 20221208
  Transmission Date: 20230113
  Serious: No
  Sender: FDA-Public Use
  Company Number: 2022A398688

PATIENT
  Sex: Female

DRUGS (2)
  1. FASLODEX [Suspect]
     Active Substance: FULVESTRANT
     Route: 030
  2. IBRANCE [Suspect]
     Active Substance: PALBOCICLIB
     Indication: Breast cancer female
     Route: 048

REACTIONS (10)
  - Wound dehiscence [Unknown]
  - Scar [Unknown]
  - Scab [Unknown]
  - White blood cell count decreased [Unknown]
  - Injection site mass [Unknown]
  - Arthralgia [Unknown]
  - Sleep disorder [Unknown]
  - Appetite disorder [Unknown]
  - Nausea [Unknown]
  - Anxiety [Unknown]
